FAERS Safety Report 20457193 (Version 2)
Quarter: 2022Q1

REPORT INFORMATION
  Report Type: Spontaneous
  Country: FR (occurrence: FR)
  Receive Date: 20220210
  Receipt Date: 20220218
  Transmission Date: 20220424
  Serious: Yes (Other)
  Sender: FDA-Public Use
  Company Number: None

PATIENT
  Sex: Male

DRUGS (1)
  1. TRAMADOL [Suspect]
     Active Substance: TRAMADOL
     Indication: Product used for unknown indication
     Dosage: UNK

REACTIONS (3)
  - Drug abuse [Unknown]
  - Fatigue [Unknown]
  - Mood swings [Unknown]

NARRATIVE: CASE EVENT DATE: 20211211
